FAERS Safety Report 8160439-8 (Version None)
Quarter: 2012Q1

REPORT INFORMATION
  Report Type: 
  Country: None (occurrence: None)
  Receive Date: 20120223
  Receipt Date: 20120213
  Transmission Date: 20120608
  Serious: No
  Sender: FDA-Public Use
  Company Number: US-BAYER-2012-015731

PATIENT
  Age: 54 Year
  Sex: Female
  Weight: 91 kg

DRUGS (4)
  1. EFFEXOR XR [Concomitant]
     Route: 048
  2. VITAMIN D [Concomitant]
     Indication: VITAMIN SUPPLEMENTATION
     Dosage: 100 MG, QD
  3. PRILOSEC [Concomitant]
     Indication: DYSPEPSIA
     Route: 048
  4. ASPIRIN [Suspect]
     Indication: PAIN
     Dosage: 1 TABLET, PRN
     Route: 048
     Dates: start: 20110201, end: 20120212

REACTIONS (1)
  - FOREIGN BODY [None]
